FAERS Safety Report 9238829 (Version 1)
Quarter: 2013Q1

REPORT INFORMATION
  Report Type: Spontaneous
  Country: US (occurrence: None)
  Receive Date: 20121107
  Receipt Date: 20121107
  Transmission Date: 20140127
  Serious: No
  Sender: FDA-Public Use
  Company Number: 2012HGS-003850

PATIENT
  Age: 61 Year
  Sex: Female
  Weight: 74.39 kg

DRUGS (10)
  1. BENLYSTA [Suspect]
     Indication: SYSTEMIC LUPUS ERYTHEMATOSUS
     Dosage: 1 IN 14 D
     Route: 041
     Dates: start: 20120719
  2. PLAQUENIL (HYDROXYCHLOROQUINE PHOSPHATE) (HYDROXYCHLOROQUINE PHOSPHATE) [Concomitant]
  3. METFORMIN (METFORMIN HYDROCHLORIDE) (METFORMIN HYDROCHLORIDE) [Concomitant]
  4. AMARYL (GLIMEPIRIDE) (GLIMEPIRIDE) [Concomitant]
  5. VICTOZA (LIRAGLUTIDE) (LIRAGLUTIDE) [Concomitant]
  6. FOLIC ACID (FOLIC ACID) (FOLIC ACID) [Concomitant]
  7. SALAGEN (PILOCARPINE HYDROCHLORIDE) (PILOCARPINE HYDROCHLORIDE) [Concomitant]
  8. FISH OIL (FISH OIL) (FISH OIL) [Concomitant]
  9. VITAMIN D (ERGOCALCIFEROL) (ERGOCALCIFEROL0 [Concomitant]
  10. AMBIEN (ZOLPIDEM TARTRATE) (ZOLPIDEM TARTRATE) [Concomitant]

REACTIONS (2)
  - Hypoglycaemia [None]
  - Dizziness [None]
